FAERS Safety Report 16073011 (Version 1)
Quarter: 2019Q1

REPORT INFORMATION
  Report Type: Spontaneous
  Country: ES (occurrence: ES)
  Receive Date: 20190314
  Receipt Date: 20190314
  Transmission Date: 20190418
  Serious: Yes (Other)
  Sender: FDA-Public Use
  Company Number: PHHY2019ES047784

PATIENT
  Age: 51 Year
  Sex: Female

DRUGS (1)
  1. MOXIFLOXACIN. [Suspect]
     Active Substance: MOXIFLOXACIN
     Indication: BRONCHITIS
     Route: 065

REACTIONS (5)
  - Iris transillumination defect [Recovering/Resolving]
  - Ocular hyperaemia [Unknown]
  - Visual acuity reduced [Unknown]
  - Photophobia [Unknown]
  - Product use in unapproved indication [Unknown]
